FAERS Safety Report 9102584 (Version 1)
Quarter: 2013Q1

REPORT INFORMATION
  Report Type: Report from Study
  Country: AT (occurrence: AT)
  Receive Date: 20130219
  Receipt Date: 20130219
  Transmission Date: 20140127
  Serious: Yes (Death)
  Sender: FDA-Public Use
  Company Number: AT-BAXTER-2013BAX005894

PATIENT
  Sex: 0

DRUGS (4)
  1. ENDOXAN [Suspect]
     Indication: PLASMA CELL MYELOMA
     Dosage: DAYS 1 AND 8
     Route: 042
  2. BORTEZOMIB [Suspect]
     Indication: PLASMA CELL MYELOMA
     Dosage: DAYS 1, 4, 8 AND 11
     Route: 042
  3. THALIDOMIDE [Suspect]
     Indication: PLASMA CELL MYELOMA
     Dosage: DAYS 1 THROUGH 21
  4. DEXAMETHASONE [Suspect]
     Indication: PLASMA CELL MYELOMA
     Dosage: DAYS 1-4 AND 9-12

REACTIONS (1)
  - Cardio-respiratory arrest [Fatal]
